FAERS Safety Report 4353284-2 (Version None)
Quarter: 2004Q2

REPORT INFORMATION
  Report Type: 
  Country: None (occurrence: None)
  Receive Date: 20040428
  Receipt Date: 20040413
  Transmission Date: 20050107
  Serious: Yes (Hospitalization)
  Sender: FDA-Public Use
  Company Number: 2004-00955

PATIENT
  Age: 71 Year
  Sex: Male

DRUGS (5)
  1. IMMUCYST (BCG - IT (CONNAUGHT)), AVENTIS PASTEUR LTD. , LOT NOT REP, I [Suspect]
     Indication: BLADDER CANCER
     Dosage: 81 MG 981.0 MG) IN., BLADDER
     Dates: start: 20040123, end: 20040206
  2. ALLOPURINOL TAB [Concomitant]
  3. BROMHEXINE HYDROCHLORIDE [Concomitant]
  4. ADENOSINE TRIPHOSPHATE [Concomitant]
  5. ETHYL LOFLAZEPATE [Concomitant]

REACTIONS (12)
  - BLADDER PAIN [None]
  - BLOOD CREATINE INCREASED [None]
  - DYSURIA [None]
  - GRANULOMA [None]
  - LOCAL REACTION [None]
  - NOCTURIA [None]
  - POLLAKIURIA [None]
  - PYREXIA [None]
  - RENAL DISORDER [None]
  - URINARY RETENTION [None]
  - URINARY TRACT INFECTION [None]
  - WHITE BLOOD CELL COUNT INCREASED [None]
